FAERS Safety Report 5594816-6 (Version None)
Quarter: 2008Q1

REPORT INFORMATION
  Report Type: 
  Country: None (occurrence: None)
  Receive Date: 20080117
  Receipt Date: 20080116
  Transmission Date: 20080703
  Serious: Yes (Other)
  Sender: FDA-Public Use
  Company Number: B0503789A

PATIENT

DRUGS (1)
  1. COMBIVIR [Suspect]
     Indication: HIV INFECTION
     Route: 065

REACTIONS (1)
  - PNEUMONITIS [None]
